FAERS Safety Report 9215032 (Version 2)
Quarter: 2013Q2

REPORT INFORMATION
  Report Type: Spontaneous
  Country: US (occurrence: US)
  Receive Date: 20130405
  Receipt Date: 20130415
  Transmission Date: 20140414
  Serious: Yes (Other)
  Sender: FDA-Public Use
  Company Number: CHPA2013US005684

PATIENT
  Age: 60 Year
  Sex: Female

DRUGS (3)
  1. EXCEDRIN TENSION HEADACHE [Suspect]
     Indication: CLUSTER HEADACHE
     Dosage: 2 TO 4 DF PER DAY, AS NEEDED
     Route: 048
     Dates: start: 2003, end: 2012
  2. EXCEDRIN TENSION HEADACHE [Suspect]
     Indication: TENSION HEADACHE
  3. EXCEDRIN EXTRA STRENGTH [Suspect]
     Indication: HEADACHE
     Dosage: 2 TO 4 DF PER DAY, AS NEEDED
     Route: 048
     Dates: start: 1971, end: 201201

REACTIONS (4)
  - Colitis [Unknown]
  - Diverticulum [Unknown]
  - Stress [Unknown]
  - Headache [Unknown]
